FAERS Safety Report 14760024 (Version 16)
Quarter: 2019Q1

REPORT INFORMATION
  Report Type: Report from Study
  Country: US (occurrence: US)
  Receive Date: 20180413
  Receipt Date: 20190327
  Transmission Date: 20190417
  Serious: Yes (Hospitalization)
  Sender: FDA-Public Use
  Company Number: US-ACTELION-A-NJ2018-169143

PATIENT
  Age: 65 Year
  Sex: Female
  Weight: 52.15 kg

DRUGS (6)
  1. ELIQUIS [Concomitant]
     Active Substance: APIXABAN
  2. SILDENAFIL. [Concomitant]
     Active Substance: SILDENAFIL
  3. VELETRI [Suspect]
     Active Substance: EPOPROSTENOL
     Indication: PULMONARY HYPERTENSION
     Dosage: 6 NG/KG, PER MIN
     Route: 042
     Dates: start: 20180306
  4. VELETRI [Suspect]
     Active Substance: EPOPROSTENOL
     Dosage: 8 NG/KG, PER MIN
     Route: 042
  5. VELETRI [Suspect]
     Active Substance: EPOPROSTENOL
     Dosage: 9 NG/KG, PER MIN
     Route: 042
  6. OPSUMIT [Suspect]
     Active Substance: MACITENTAN
     Indication: PULMONARY HYPERTENSION
     Dosage: 10 MG, QD
     Route: 048
     Dates: start: 20180314

REACTIONS (42)
  - Blood bilirubin increased [Recovered/Resolved]
  - Acute myocardial infarction [Unknown]
  - Respiratory failure [Recovered/Resolved with Sequelae]
  - Oedema [Recovered/Resolved with Sequelae]
  - Dyspnoea exertional [Unknown]
  - Erythema [Unknown]
  - Aspartate aminotransferase increased [Recovered/Resolved]
  - Abdominal pain [Recovered/Resolved]
  - Peripheral artery thrombosis [Unknown]
  - Oedema peripheral [Recovered/Resolved with Sequelae]
  - Diarrhoea [Unknown]
  - Headache [Unknown]
  - Rash [Recovering/Resolving]
  - Hypoxia [Not Recovered/Not Resolved]
  - Sinus tachycardia [Not Recovered/Not Resolved]
  - Transaminases increased [Recovered/Resolved]
  - Catheter site inflammation [Recovering/Resolving]
  - Epistaxis [Not Recovered/Not Resolved]
  - Hypoaesthesia [Unknown]
  - Anaemia [Not Recovered/Not Resolved]
  - Productive cough [Recovered/Resolved with Sequelae]
  - Fatigue [Recovering/Resolving]
  - Catheter site erythema [Recovering/Resolving]
  - Therapy non-responder [Unknown]
  - Pneumonia klebsiella [Recovering/Resolving]
  - Blood alkaline phosphatase increased [Recovered/Resolved]
  - Flushing [Unknown]
  - Visual impairment [Unknown]
  - Haemoglobin decreased [Not Recovered/Not Resolved]
  - Dyspnoea [Unknown]
  - Weight increased [Unknown]
  - Fluid retention [Unknown]
  - Palpitations [Not Recovered/Not Resolved]
  - Skin burning sensation [Recovering/Resolving]
  - Liver function test increased [Recovered/Resolved]
  - Alanine aminotransferase increased [Recovered/Resolved]
  - Pyrexia [Recovered/Resolved with Sequelae]
  - Abdominal discomfort [Unknown]
  - Insomnia [Unknown]
  - Dizziness [Unknown]
  - Chest discomfort [Unknown]
  - Exercise tolerance decreased [Unknown]

NARRATIVE: CASE EVENT DATE: 2018
